FAERS Safety Report 4909036-5 (Version None)
Quarter: 2006Q1

REPORT INFORMATION
  Report Type: 
  Country: None (occurrence: None)
  Receive Date: 20060208
  Receipt Date: 20060206
  Transmission Date: 20060701
  Serious: No
  Sender: FDA-Public Use
  Company Number: TAP2006Q00118

PATIENT
  Age: 8 Year
  Sex: Female
  Weight: 45 kg

DRUGS (2)
  1. LUPRON DEPOT [Suspect]
     Indication: PRECOCIOUS PUBERTY
     Dosage: SEE IMAGE, INTRAMUSCULAR
     Route: 030
     Dates: start: 20050401, end: 20050801
  2. LUPRON DEPOT [Suspect]
     Indication: PRECOCIOUS PUBERTY
     Dosage: SEE IMAGE, INTRAMUSCULAR
     Route: 030
     Dates: start: 20050901

REACTIONS (2)
  - IIIRD NERVE DISORDER [None]
  - OPTIC NERVE CUPPING [None]
